FAERS Safety Report 6333272-7 (Version None)
Quarter: 2009Q3

REPORT INFORMATION
  Report Type: 
  Country: None (occurrence: None)
  Receive Date: 20090828
  Receipt Date: 20090821
  Transmission Date: 20100115
  Serious: Yes (Other)
  Sender: FDA-Public Use
  Company Number: US-B.I. PHARMACEUTICALS,INC./RIDGEFIELD-2009-BP-07868BP

PATIENT
  Sex: Female
  Weight: 119.75 kg

DRUGS (6)
  1. MIRAPEX [Suspect]
     Indication: RESTLESS LEGS SYNDROME
     Dosage: 0.5 MG
     Dates: start: 20071101, end: 20090501
  2. LEXAPRO [Concomitant]
     Dosage: 10 MG
  3. CRESTOR [Concomitant]
     Dosage: 10 MG
  4. ZETIA [Concomitant]
     Dosage: 10 MG
  5. DIOVAN HCT [Concomitant]
  6. LIMBREL [Concomitant]
     Indication: ARTHRITIS
     Dosage: 500 MG

REACTIONS (26)
  - ALOPECIA [None]
  - CHEST PAIN [None]
  - COMPULSIVE SHOPPING [None]
  - DEHYDRATION [None]
  - DEPENDENCE [None]
  - DEPRESSION [None]
  - DIARRHOEA [None]
  - DISTURBANCE IN ATTENTION [None]
  - DIZZINESS [None]
  - FEELING ABNORMAL [None]
  - FLUID RETENTION [None]
  - GAIT DISTURBANCE [None]
  - HYPERPHAGIA [None]
  - MIDDLE INSOMNIA [None]
  - MUSCULAR WEAKNESS [None]
  - MYALGIA [None]
  - NASAL CONGESTION [None]
  - OEDEMA [None]
  - PATHOLOGICAL GAMBLING [None]
  - SKIN LESION [None]
  - SLUGGISHNESS [None]
  - SQUAMOUS CELL CARCINOMA [None]
  - SUDDEN ONSET OF SLEEP [None]
  - TENDONITIS [None]
  - WEIGHT DECREASED [None]
  - WEIGHT INCREASED [None]
